FAERS Safety Report 10219481 (Version 2)
Quarter: 2014Q2

REPORT INFORMATION
  Report Type: Spontaneous
  Country: JP (occurrence: JP)
  Receive Date: 20140605
  Receipt Date: 20140605
  Transmission Date: 20141212
  Serious: Yes (Death, Hospitalization)
  Sender: FDA-Public Use
  Company Number: JP-BAYER-2013-058823

PATIENT
  Age: 64 Year
  Sex: Male
  Weight: 79 kg

DRUGS (9)
  1. NEXAVAR [Suspect]
     Indication: HEPATOCELLULAR CARCINOMA
     Dosage: 400 MG, BID
     Route: 048
     Dates: start: 20121023, end: 20121030
  2. NEXAVAR [Suspect]
     Indication: HEPATOCELLULAR CARCINOMA
     Dosage: DAILY DOSE 800 MG
     Route: 048
     Dates: start: 20121031, end: 20140206
  3. LEVEMIR [Concomitant]
     Indication: DIABETES MELLITUS
     Dosage: DAILY DOSE 9 U
     Route: 058
     Dates: start: 20120620, end: 20140307
  4. AMLODIN [Concomitant]
     Indication: HYPERTENSION
     Dosage: DAILY DOSE 5 MG
     Route: 048
     Dates: start: 20120620, end: 20140307
  5. GLYCYRON [AMINOACETIC ACID,DL-METHIONINE,GLYCYRRHIZIC ACID] [Concomitant]
     Dosage: DAILY DOSE 6 DF
     Route: 048
     Dates: start: 20120620, end: 20140307
  6. URSO [Concomitant]
     Dosage: DAILY DOSE 600 MG
     Route: 048
     Dates: start: 20120620, end: 20140307
  7. AMARYL [Concomitant]
     Indication: DIABETES MELLITUS
     Dosage: DAILY DOSE 5 MG
     Route: 048
     Dates: start: 20120620, end: 20140307
  8. BASEN [Concomitant]
     Indication: DIABETES MELLITUS
     Dosage: DAILY DOSE .9 MG
     Route: 048
     Dates: start: 20120620, end: 20140307
  9. GASCON [Concomitant]
     Dosage: DAILY DOSE 240 MG
     Route: 048
     Dates: start: 20120620, end: 20140307

REACTIONS (3)
  - Large intestinal haemorrhage [Recovered/Resolved]
  - Hepatocellular carcinoma [Fatal]
  - Rash [Recovered/Resolved]
